FAERS Safety Report 24307884 (Version 1)
Quarter: 2024Q3

REPORT INFORMATION
  Report Type: Spontaneous
  Country: US (occurrence: US)
  Receive Date: 20240911
  Receipt Date: 20240911
  Transmission Date: 20241016
  Serious: Yes (Life-Threatening, Other)
  Sender: GLENMARK
  Company Number: US-MLMSERVICE-20240822-PI169629-00201-1

PATIENT

DRUGS (6)
  1. LIDOCAINE [Suspect]
     Active Substance: LIDOCAINE
     Indication: Epidural anaesthesia
     Dosage: 300 MILLIGRAM, TOTAL; ADMINISTERED THROUGH THE EPIDURAL CATHETER/15 ML OF 2% LIDOCAINE IN THREE 5 ML
     Route: 008
  2. LIDOCAINE [Suspect]
     Active Substance: LIDOCAINE
     Indication: Spinal anaesthesia
  3. BUPIVACAINE [Concomitant]
     Active Substance: BUPIVACAINE
     Indication: Spinal anaesthesia
     Dosage: 9 MILLIGRAM, MIXTURE OF 9.0 MG OF 0.75% HYPERBARIC BUPIVACAINE
     Route: 037
  4. FENTANYL [Concomitant]
     Active Substance: FENTANYL\FENTANYL CITRATE
     Indication: Product used for unknown indication
     Dosage: 15 MICROGRAM, MIXTURE OF 15 MCG FENTANYL
     Route: 037
  5. MORPHINE [Concomitant]
     Active Substance: MORPHINE
     Indication: Product used for unknown indication
     Dosage: 0.2 MILLIGRAM, MIXTURE OF 0.2 MG PRESERVATIVE-FREE MORPHINE
     Route: 037
  6. CHLORHEXIDINE [Concomitant]
     Active Substance: CHLORHEXIDINE
     Indication: Product used for unknown indication
     Dosage: UNK; BACK WAS PREPPED
     Route: 065

REACTIONS (3)
  - Local anaesthetic systemic toxicity [Recovered/Resolved]
  - Overdose [Unknown]
  - Dose calculation error [Unknown]
